FAERS Safety Report 5227207-8 (Version None)
Quarter: 2007Q1

REPORT INFORMATION
  Report Type: 
  Country: None (occurrence: None)
  Receive Date: 20070202
  Receipt Date: 20070124
  Transmission Date: 20070707
  Serious: Yes (Other)
  Sender: FDA-Public Use
  Company Number: GB-GLAXOSMITHKLINE-B0444456A

PATIENT
  Sex: Female

DRUGS (1)
  1. SEROXAT [Suspect]
     Indication: DEPRESSION
     Route: 048
     Dates: start: 19970101

REACTIONS (14)
  - AGGRESSION [None]
  - ALCOHOLISM [None]
  - ANXIETY [None]
  - APATHY [None]
  - DECREASED APPETITE [None]
  - DISTURBANCE IN ATTENTION [None]
  - DRUG WITHDRAWAL SYNDROME [None]
  - HOMICIDAL IDEATION [None]
  - HYPOAESTHESIA [None]
  - IRRITABILITY [None]
  - LETHARGY [None]
  - PANIC ATTACK [None]
  - SUICIDAL IDEATION [None]
  - TEARFULNESS [None]
